FAERS Safety Report 26171633 (Version 1)
Quarter: 2025Q4

REPORT INFORMATION
  Report Type: Spontaneous
  Country: US (occurrence: US)
  Receive Date: 20251217
  Receipt Date: 20251217
  Transmission Date: 20260119
  Serious: No
  Sender: ANI
  Company Number: US-ANIPHARMA-2025-US-054619

PATIENT
  Sex: Female

DRUGS (13)
  1. CORTICOTROPIN [Suspect]
     Active Substance: CORTICOTROPIN
     Indication: Rheumatoid arthritis
     Dosage: 1 ML TWO TIMES PER WEEK
     Route: 058
  2. FUROSEMIDE [Concomitant]
     Active Substance: FUROSEMIDE
  3. GABAPENTIN [Concomitant]
     Active Substance: GABAPENTIN
  4. GLIMEPIRIDE [Concomitant]
     Active Substance: GLIMEPIRIDE
  5. FOLIC ACID [Concomitant]
     Active Substance: FOLIC ACID
  6. TOPIRAMATE [Concomitant]
     Active Substance: TOPIRAMATE
  7. METHOTREXATE SODIUM [Concomitant]
     Active Substance: METHOTREXATE SODIUM
  8. ESCITALOPRAM OXALATE [Concomitant]
     Active Substance: ESCITALOPRAM OXALATE
  9. SIMPONI ARIA [Concomitant]
     Active Substance: GOLIMUMAB
  10. ATORVASTATIN CALCIUM [Concomitant]
     Active Substance: ATORVASTATIN CALCIUM
  11. LEVOTHROID [Concomitant]
     Active Substance: LEVOTHYROXINE SODIUM
  12. ACETAMINOPHEN\HYDROCODONE [Concomitant]
     Active Substance: ACETAMINOPHEN\HYDROCODONE
  13. VITAMIN D2 [Concomitant]
     Active Substance: ERGOCALCIFEROL

REACTIONS (3)
  - Product dose omission issue [Unknown]
  - Arthritis [Unknown]
  - Illness [Unknown]
